FAERS Safety Report 14228818 (Version 1)
Quarter: 2017Q4

REPORT INFORMATION
  Report Type: Spontaneous
  Country: SA (occurrence: SA)
  Receive Date: 20171128
  Receipt Date: 20171128
  Transmission Date: 20180321
  Serious: Yes (Hospitalization)
  Sender: FDA-Public Use
  Company Number: SA-MERCK KGAA-2036099

PATIENT
  Age: 55 Year
  Sex: Male

DRUGS (1)
  1. NOVOTHYROX [Suspect]
     Active Substance: LEVOTHYROXINE SODIUM
     Indication: HYPOTHYROIDISM
     Dates: start: 2015

REACTIONS (2)
  - Mycosis fungoides [Not Recovered/Not Resolved]
  - Antibody test abnormal [None]

NARRATIVE: CASE EVENT DATE: 2015
